FAERS Safety Report 23064247 (Version 1)
Quarter: 2023Q4

REPORT INFORMATION
  Report Type: Spontaneous
  Country: US (occurrence: US)
  Receive Date: 20231013
  Receipt Date: 20231013
  Transmission Date: 20240110
  Serious: Yes (Other)
  Sender: FDA-Public Use
  Company Number: US-SA-SAC20231009000672

PATIENT
  Age: 69 Year
  Sex: Female

DRUGS (1)
  1. KEVZARA [Suspect]
     Active Substance: SARILUMAB
     Indication: Rheumatoid arthritis
     Dosage: 200 MG, QOW
     Route: 058

REACTIONS (6)
  - Renal impairment [Unknown]
  - Migraine [Unknown]
  - Dizziness [Unknown]
  - Rash [Unknown]
  - Cough [Unknown]
  - Joint swelling [Unknown]

NARRATIVE: CASE EVENT DATE: 20230925
